FAERS Safety Report 25889122 (Version 2)
Quarter: 2025Q4

REPORT INFORMATION
  Report Type: Spontaneous
  Country: US (occurrence: US)
  Receive Date: 20251007
  Receipt Date: 20251007
  Transmission Date: 20260117
  Serious: Yes (Other)
  Sender: GILEAD
  Company Number: US-GILEAD-2025-0730741

PATIENT
  Age: 34 Year
  Sex: Male

DRUGS (1)
  1. HARVONI [Suspect]
     Active Substance: LEDIPASVIR\SOFOSBUVIR
     Indication: Hepatitis C
     Dosage: UNK
     Route: 065
     Dates: start: 20250825

REACTIONS (12)
  - Syncope [Unknown]
  - Abdominal pain upper [Unknown]
  - Tinnitus [Not Recovered/Not Resolved]
  - Dizziness [Unknown]
  - Photopsia [Unknown]
  - Ear pain [Unknown]
  - Malaise [Unknown]
  - Feeling abnormal [Unknown]
  - Product dose omission issue [Unknown]
  - Hyperacusis [Unknown]
  - Thinking abnormal [Unknown]
  - Hypoacusis [Unknown]

NARRATIVE: CASE EVENT DATE: 20250926
